FAERS Safety Report 9468503 (Version 2)
Quarter: 2013Q4

REPORT INFORMATION
  Report Type: Spontaneous
  Country: BR (occurrence: BR)
  Receive Date: 20130821
  Receipt Date: 20131004
  Transmission Date: 20140711
  Serious: Yes (Other)
  Sender: FDA-Public Use
  Company Number: BR-009507513-1308BRA008937

PATIENT
  Age: 35 Year
  Sex: Female
  Weight: 56 kg

DRUGS (2)
  1. NUVARING [Suspect]
     Indication: CONTRACEPTION
     Dosage: UNK
     Route: 067
     Dates: start: 2006
  2. NUVARING [Suspect]
     Dosage: UNK
     Route: 067

REACTIONS (5)
  - Caesarean section [Unknown]
  - Discomfort [Recovered/Resolved]
  - Vulvovaginal mycotic infection [Unknown]
  - Device breakage [Unknown]
  - Maternal exposure before pregnancy [Unknown]
